FAERS Safety Report 5745544-5 (Version None)
Quarter: 2008Q2

REPORT INFORMATION
  Report Type: 
  Country: None (occurrence: None)
  Receive Date: 20080521
  Receipt Date: 20080512
  Transmission Date: 20081010
  Serious: Yes (Disabling)
  Sender: FDA-Public Use
  Company Number: BR-PFIZER INC-2008031633

PATIENT
  Sex: Male

DRUGS (3)
  1. ACCUPRIL [Suspect]
     Indication: HYPERTENSION
     Route: 048
  2. IRON POLYMALTOSE [Concomitant]
  3. AAS [Concomitant]

REACTIONS (1)
  - RENAL FAILURE CHRONIC [None]
